FAERS Safety Report 6565153-8 (Version None)
Quarter: 2010Q1

REPORT INFORMATION
  Report Type: 
  Country: None (occurrence: None)
  Receive Date: 20100201
  Receipt Date: 20100119
  Transmission Date: 20100710
  Serious: Yes (Hospitalization)
  Sender: FDA-Public Use
  Company Number: B0626974A

PATIENT
  Sex: Female

DRUGS (7)
  1. PANDEMRIX [Suspect]
     Indication: PROPHYLAXIS
     Route: 065
     Dates: start: 20091207, end: 20091207
  2. HYCAMTIN [Suspect]
     Indication: OVARIAN CANCER
     Route: 065
     Dates: start: 20091208
  3. TAVANIC [Concomitant]
     Route: 048
     Dates: start: 20091115, end: 20091130
  4. INNOHEP [Concomitant]
     Indication: THROMBOSIS
     Route: 065
     Dates: start: 20091115, end: 20091214
  5. SOLUPRED [Concomitant]
     Route: 065
  6. XANAX [Concomitant]
     Route: 065
  7. DAFALGAN [Concomitant]
     Route: 065

REACTIONS (3)
  - DEEP VEIN THROMBOSIS [None]
  - OEDEMA PERIPHERAL [None]
  - THROMBOCYTOPENIA [None]
